FAERS Safety Report 5702891-0 (Version None)
Quarter: 2008Q2

REPORT INFORMATION
  Report Type: 
  Country: None (occurrence: None)
  Receive Date: 20080411
  Receipt Date: 20080404
  Transmission Date: 20081010
  Serious: Yes (Hospitalization, Other)
  Sender: FDA-Public Use
  Company Number: JP-MERCK-0804USA02068

PATIENT
  Age: 77 Year
  Sex: Female

DRUGS (2)
  1. FOSAMAX [Suspect]
     Indication: OSTEOPOROSIS
     Route: 048
     Dates: start: 20030910
  2. KETOPROFEN [Concomitant]
     Route: 061
     Dates: start: 20030108

REACTIONS (2)
  - FEMUR FRACTURE [None]
  - STRESS FRACTURE [None]
